FAERS Safety Report 5914632-2 (Version None)
Quarter: 2008Q4

REPORT INFORMATION
  Report Type: 
  Country: None (occurrence: None)
  Receive Date: 20081010
  Receipt Date: 20080731
  Transmission Date: 20090506
  Serious: No
  Sender: FDA-Public Use
  Company Number: A0740493A

PATIENT
  Age: 71 Year
  Sex: Female

DRUGS (13)
  1. REQUIP XL [Suspect]
     Indication: RESTLESS LEGS SYNDROME
     Dosage: 2MG SINGLE DOSE
     Route: 048
     Dates: start: 20080728
  2. UNKNOWN ANESTHESIA [Suspect]
     Dates: start: 20080729
  3. HYDROCODONE BITARTRATE [Concomitant]
  4. KLONOPIN [Concomitant]
  5. FIORICET [Concomitant]
  6. SUBLINGUAL NITROGLYCERINE [Concomitant]
  7. CLARINEX [Concomitant]
  8. PLAVIX [Concomitant]
  9. ASPIRIN [Concomitant]
  10. PROPRANOLOL [Concomitant]
  11. DILTIAZEM HCL [Concomitant]
  12. POTASSIUM CHLORIDE [Concomitant]
  13. PRILOSEC [Concomitant]

REACTIONS (2)
  - HEADACHE [None]
  - RASH GENERALISED [None]
